FAERS Safety Report 10568023 (Version 1)
Quarter: 2014Q4

REPORT INFORMATION
  Report Type: Spontaneous
  Country: US (occurrence: None)
  Receive Date: 20141105
  Receipt Date: 20141105
  Transmission Date: 20150529
  Serious: Yes (Disabling)
  Sender: FDA-Public Use
  Company Number: None

PATIENT
  Age: 68 Year
  Sex: Female
  Weight: 90.72 kg

DRUGS (7)
  1. UCERIS [Suspect]
     Active Substance: BUDESONIDE
     Indication: COLITIS ULCERATIVE
     Dosage: 1 TABLET QD ORAL
     Route: 048
     Dates: start: 20140714, end: 20141001
  2. ATORVASTATIN [Concomitant]
     Active Substance: ATORVASTATIN
  3. LIALDA [Concomitant]
     Active Substance: MESALAMINE
  4. BENICAR [Concomitant]
     Active Substance: OLMESARTAN MEDOXOMIL
  5. DILTIAZEM [Concomitant]
     Active Substance: DILTIAZEM
  6. METFORMIN [Concomitant]
     Active Substance: METFORMIN HYDROCHLORIDE
  7. GLIPIZIDE. [Concomitant]
     Active Substance: GLIPIZIDE

REACTIONS (9)
  - Nausea [None]
  - Muscular weakness [None]
  - Vulvovaginal candidiasis [None]
  - Fatigue [None]
  - Adrenal insufficiency [None]
  - Peripheral swelling [None]
  - Dyspnoea [None]
  - Erythema [None]
  - Psoriasis [None]

NARRATIVE: CASE EVENT DATE: 20141104
